FAERS Safety Report 16791049 (Version 1)
Quarter: 2019Q3

REPORT INFORMATION
  Report Type: Spontaneous
  Country: NL (occurrence: NL)
  Receive Date: 20190910
  Receipt Date: 20190910
  Transmission Date: 20191005
  Serious: Yes (Other)
  Sender: FDA-Public Use
  Company Number: NL-TEVA-2019-NL-1103682

PATIENT
  Sex: Female
  Weight: 59 kg

DRUGS (3)
  1. ETHINYLESTRADIOL/LEVONORGESTREL TABLET [Suspect]
     Active Substance: ETHINYL ESTRADIOL\LEVONORGESTREL
     Indication: CONTRACEPTION
     Dosage: 1DD1 1 DOSAGE FORMS
     Dates: start: 20190610
  2. ESCITALOPRAM 20 MG [Concomitant]
     Active Substance: ESCITALOPRAM OXALATE
     Dosage: 1 DD 1 20 MG 1 DAYS
  3. DEXAMFETAMINE 2.5 MG [Concomitant]
     Dosage: 3DD4 10 MG 8 HOURS

REACTIONS (5)
  - Therapeutic response unexpected [Not Recovered/Not Resolved]
  - Migraine [Not Recovered/Not Resolved]
  - Muscle spasms [Not Recovered/Not Resolved]
  - Haemorrhage [Not Recovered/Not Resolved]
  - Acne [Not Recovered/Not Resolved]
